FAERS Safety Report 9649086 (Version 2)
Quarter: 2013Q4

REPORT INFORMATION
  Report Type: Spontaneous
  Country: SI (occurrence: SI)
  Receive Date: 20131028
  Receipt Date: 20131122
  Transmission Date: 20140711
  Serious: Yes (Hospitalization, Other)
  Sender: FDA-Public Use
  Company Number: SI-ELI_LILLY_AND_COMPANY-SI201310005623

PATIENT
  Sex: Male

DRUGS (15)
  1. EFIENT [Suspect]
     Indication: PERCUTANEOUS CORONARY INTERVENTION
     Dosage: 60 MG, SINGLE
     Route: 048
     Dates: start: 20131008
  2. EFIENT [Suspect]
     Dosage: 10 MG, QD
     Route: 048
  3. ASPIRIN [Concomitant]
     Dosage: 100 MG, UNK
     Route: 065
  4. NOLPAZA [Concomitant]
     Dosage: 40 MG, UNK
     Route: 065
  5. CARDURA XL [Concomitant]
     Dosage: 4 MG, UNK
     Route: 065
  6. PREDUCTAL MR [Concomitant]
     Route: 065
  7. CORYOL [Concomitant]
     Dosage: 12.5 MG, BID
     Route: 065
  8. LESCOL [Concomitant]
     Dosage: 20 MG, UNK
     Route: 065
  9. STOCRIN [Concomitant]
     Indication: HIV INFECTION
     Dosage: 200 MG, UNK
     Route: 065
  10. STOCRIN [Concomitant]
     Dosage: 1 DF, UNK
     Route: 065
  11. TRUVADA [Concomitant]
     Indication: HIV INFECTION
     Dosage: 1 DF, QD
     Route: 065
  12. MYAMBUTOL [Concomitant]
     Indication: TUBERCULOSIS
     Dosage: 3 DF, QD
     Route: 065
  13. RIFATER [Concomitant]
     Indication: TUBERCULOSIS
     Dosage: 6 DF, QD
     Route: 065
  14. B COMPLEX                          /00212701/ [Concomitant]
     Indication: TUBERCULOSIS
     Dosage: 6 DF, QD
     Route: 065
  15. NITRONAL [Concomitant]
     Indication: CHEST PAIN
     Route: 065

REACTIONS (7)
  - Cheyne-Stokes respiration [Unknown]
  - Immune reconstitution inflammatory syndrome [Unknown]
  - Acquired immunodeficiency syndrome [Unknown]
  - Arthralgia [Unknown]
  - Pyrexia [Unknown]
  - Tachycardia [Unknown]
  - Hypotension [Unknown]
